FAERS Safety Report 7903360-X (Version None)
Quarter: 2011Q4

REPORT INFORMATION
  Report Type: 
  Country: None (occurrence: None)
  Receive Date: 20111109
  Receipt Date: 20111108
  Transmission Date: 20120403
  Serious: No
  Sender: FDA-Public Use
  Company Number: US-PFIZER INC-2011273663

PATIENT
  Sex: Female
  Weight: 56.7 kg

DRUGS (2)
  1. LIPITOR [Suspect]
     Dosage: 10 MG, DAILY
     Dates: start: 20111001
  2. LIPITOR [Suspect]
     Indication: BLOOD CHOLESTEROL INCREASED
     Dosage: 10 MG, DAILY
     Route: 048
     Dates: start: 20100101, end: 20100101

REACTIONS (2)
  - RASH MACULAR [None]
  - INSOMNIA [None]
